FAERS Safety Report 5741400-7 (Version None)
Quarter: 2008Q2

REPORT INFORMATION
  Report Type: 
  Country: None (occurrence: None)
  Receive Date: 20080514
  Receipt Date: 20080428
  Transmission Date: 20081010
  Serious: Yes (Other)
  Sender: FDA-Public Use
  Company Number: DSA_31806_2008

PATIENT
  Age: 80 Year
  Sex: Male

DRUGS (2)
  1. LORAZEPAM [Suspect]
     Indication: DRUG USE FOR UNKNOWN INDICATION
     Dosage: (5 MG 1X ORAL), (2.5 MG PRN ORAL)
     Route: 048
  2. ARICEPT /01318902/ [Concomitant]

REACTIONS (2)
  - BRADYCARDIA [None]
  - INCORRECT DOSE ADMINISTERED [None]
